FAERS Safety Report 8878006 (Version 1)
Quarter: 2012Q4

REPORT INFORMATION
  Report Type: 
  Country: US (occurrence: US)
  Receive Date: 20121025
  Receipt Date: 20121025
  Transmission Date: 20130627
  Serious: No
  Sender: FDA-Public Use
  Company Number: US-AMGEN-USASP2012020744

PATIENT
  Age: 42 Year
  Sex: Male

DRUGS (2)
  1. ENBREL [Suspect]
     Indication: PSORIATIC ARTHROPATHY
     Dosage: UNK
     Dates: start: 20050115
  2. ENBREL [Suspect]
     Indication: PSORIASIS

REACTIONS (2)
  - Arthropod bite [Not Recovered/Not Resolved]
  - Lyme disease [Recovered/Resolved]
